FAERS Safety Report 10260958 (Version 3)
Quarter: 2014Q3

REPORT INFORMATION
  Report Type: Spontaneous
  Country: US (occurrence: US)
  Receive Date: 20140626
  Receipt Date: 20140728
  Transmission Date: 20150326
  Serious: No
  Sender: FDA-Public Use
  Company Number: US-PFIZER INC-2014174048

PATIENT
  Age: 76 Year
  Sex: Female

DRUGS (1)
  1. XELJANZ [Suspect]
     Active Substance: TOFACITINIB CITRATE
     Dosage: 5 MG, 2X/DAY

REACTIONS (5)
  - Abdominal pain [Unknown]
  - Erythema [Unknown]
  - Pruritus generalised [Unknown]
  - Skin burning sensation [Unknown]
  - Contusion [Unknown]

NARRATIVE: CASE EVENT DATE: 20140620
